FAERS Safety Report 5276980-1 (Version None)
Quarter: 2007Q1

REPORT INFORMATION
  Report Type: 
  Country: None (occurrence: None)
  Receive Date: 20070327
  Receipt Date: 20070104
  Transmission Date: 20070707
  Serious: Yes (Other)
  Sender: FDA-Public Use
  Company Number: US-BRISTOL-MYERS SQUIBB COMPANY-13605571

PATIENT
  Age: 84 Year
  Sex: Female

DRUGS (16)
  1. ORENCIA [Suspect]
     Indication: RHEUMATOID ARTHRITIS
     Route: 042
  2. PREDNISONE [Concomitant]
  3. METHOTREXATE [Concomitant]
  4. VITAMIN D [Concomitant]
  5. ASPIRIN [Concomitant]
  6. ACTONEL [Concomitant]
  7. DARVOCET-N 100 [Concomitant]
  8. DIOVAN [Concomitant]
  9. ZOCOR [Concomitant]
  10. METOPROLOL SUCCINATE [Concomitant]
  11. PROTONIX [Concomitant]
  12. MAXZIDE [Concomitant]
  13. FOLIC ACID [Concomitant]
  14. MULTIVITAMIN W/IRON [Concomitant]
  15. SULFASALAZINE [Concomitant]
  16. VITAMIN C AND E [Concomitant]

REACTIONS (1)
  - SQUAMOUS CELL CARCINOMA [None]
